FAERS Safety Report 7652666-0 (Version None)
Quarter: 2011Q3

REPORT INFORMATION
  Report Type: 
  Country: None (occurrence: None)
  Receive Date: 20110803
  Receipt Date: 20110721
  Transmission Date: 20111222
  Serious: Yes (Other)
  Sender: FDA-Public Use
  Company Number: JP-ELI_LILLY_AND_COMPANY-JP201107005510

PATIENT
  Age: 55 Year
  Sex: Male

DRUGS (2)
  1. ZYPREXA [Suspect]
     Indication: SCHIZOPHRENIA
     Dosage: UNK
     Route: 048
  2. LANSOPRAZOLE [Concomitant]
     Dosage: UNK

REACTIONS (2)
  - LEG AMPUTATION [None]
  - ARTERIAL OCCLUSIVE DISEASE [None]
